FAERS Safety Report 16434215 (Version 4)
Quarter: 2023Q1

REPORT INFORMATION
  Report Type: Report from Study
  Country: FR (occurrence: FR)
  Receive Date: 20190614
  Receipt Date: 20230310
  Transmission Date: 20230418
  Serious: Yes (Death, Hospitalization, Other)
  Sender: FDA-Public Use
  Company Number: FR-PFIZER INC-2019240041

PATIENT
  Age: 76 Year
  Sex: Female

DRUGS (10)
  1. PALBOCICLIB [Suspect]
     Active Substance: PALBOCICLIB
     Indication: Breast cancer metastatic
     Dosage: 125 MG, DAILY FOR 21 DAYS
     Route: 048
     Dates: start: 20170708, end: 20190503
  2. FASLODEX [Suspect]
     Active Substance: FULVESTRANT
     Indication: Breast cancer metastatic
     Dosage: 500 MG, MONTHLY
     Route: 030
     Dates: start: 20190316, end: 20190504
  3. LETROZOLE [Suspect]
     Active Substance: LETROZOLE
     Indication: Breast cancer metastatic
     Dosage: 2.5 MG, UNK
     Dates: start: 20170708, end: 20190307
  4. ACETAMINOPHEN [Concomitant]
     Active Substance: ACETAMINOPHEN
     Indication: Pain
     Dosage: 1 G, 3X/DAY AS NEEDED
     Route: 048
     Dates: start: 2019
  5. ALPRAZOLAM [Concomitant]
     Active Substance: ALPRAZOLAM
     Indication: Anxiety
     Dosage: UNK
     Dates: start: 20190601
  6. SKENAN [Concomitant]
     Active Substance: MORPHINE SULFATE
     Indication: Pain
     Dosage: 10 MG, 2X/DAY, IN THE MORNING AND IN THE EVENING
     Route: 048
     Dates: start: 20190404
  7. MORPHINE SULFATE [Concomitant]
     Active Substance: MORPHINE SULFATE
     Indication: Pain
     Dosage: 10 MG, EVERY 4 HRS AS NEEDED
     Route: 048
     Dates: start: 20190404
  8. POLYETHYLENE GLYCOLS [Concomitant]
     Active Substance: POLYETHYLENE GLYCOLS
     Indication: Constipation
     Dosage: 1 SACHET, IN THE MORNING AS NEEDED
     Route: 048
     Dates: start: 20190404
  9. CALCIUM\CHOLECALCIFEROL [Concomitant]
     Active Substance: CALCIUM\CHOLECALCIFEROL
     Indication: Osteoporosis
     Dosage: 1 DF, 1X/DAY, IN THE MORNING
     Route: 048
     Dates: start: 20170703
  10. XGEVA [Concomitant]
     Active Substance: DENOSUMAB
     Indication: Resorption bone decreased
     Dosage: UNK
     Route: 058
     Dates: start: 20170703, end: 201905

REACTIONS (1)
  - Ejection fraction decreased [Fatal]

NARRATIVE: CASE EVENT DATE: 20190514
